FAERS Safety Report 9783367 (Version 1)
Quarter: 2013Q4

REPORT INFORMATION
  Report Type: Spontaneous
  Country: US (occurrence: US)
  Receive Date: 20131226
  Receipt Date: 20131226
  Transmission Date: 20140711
  Serious: Yes (Hospitalization)
  Sender: FDA-Public Use
  Company Number: US-BAYER-2013-156681

PATIENT
  Age: 42 Year
  Sex: Female
  Weight: 69 kg

DRUGS (3)
  1. ALEVE [Concomitant]
  2. YAZ [Suspect]
  3. LEVAQUIN [Concomitant]

REACTIONS (2)
  - Deep vein thrombosis [None]
  - Pulmonary embolism [None]
